FAERS Safety Report 6222263-2 (Version None)
Quarter: 2009Q2

REPORT INFORMATION
  Report Type: 
  Country: None (occurrence: None)
  Receive Date: 20090611
  Receipt Date: 20090603
  Transmission Date: 20091009
  Serious: Yes (Other)
  Sender: FDA-Public Use
  Company Number: US-BAYER-200911706BCC

PATIENT
  Age: 75 Year
  Sex: Male
  Weight: 77 kg

DRUGS (6)
  1. EXTRA STRENGTH BAYER BACK + BODY PAIN ASPIRIN [Suspect]
     Indication: BACK PAIN
     Dosage: TOTAL DAILY DOSE: 1 DF
     Route: 048
     Dates: start: 20060101
  2. EXTRA STRENGTH BAYER BACK + BODY PAIN ASPIRIN [Suspect]
     Dosage: TOTAL DAILY DOSE: 2 DF
     Route: 048
     Dates: start: 20090401, end: 20090401
  3. BENICAR [Concomitant]
     Indication: DRUG USE FOR UNKNOWN INDICATION
     Route: 065
  4. COREG [Concomitant]
     Indication: DRUG USE FOR UNKNOWN INDICATION
     Route: 065
  5. ACTOS [Concomitant]
     Indication: DRUG USE FOR UNKNOWN INDICATION
     Route: 065
  6. ENTERIC BAYER ASPIRIN [Concomitant]
     Indication: DRUG USE FOR UNKNOWN INDICATION
     Route: 065

REACTIONS (2)
  - BLADDER NEOPLASM [None]
  - BLOOD URINE PRESENT [None]
